FAERS Safety Report 9185786 (Version 1)
Quarter: 2013Q1

REPORT INFORMATION
  Report Type: Spontaneous
  Country: US (occurrence: None)
  Receive Date: 20130325
  Receipt Date: 20130325
  Transmission Date: 20140127
  Serious: Yes (Disabling)
  Sender: FDA-Public Use
  Company Number: None

PATIENT
  Age: 88 Year
  Sex: Female
  Weight: 60.78 kg

DRUGS (1)
  1. METHYLPREDNISOLONE [Suspect]

REACTIONS (8)
  - Malaise [None]
  - Migraine [None]
  - Blood pressure increased [None]
  - Blood glucose increased [None]
  - Pain [None]
  - Weight decreased [None]
  - Anaemia [None]
  - Product contamination [None]
